FAERS Safety Report 24713879 (Version 1)
Quarter: 2024Q4

REPORT INFORMATION
  Report Type: Spontaneous
  Country: CA (occurrence: CA)
  Receive Date: 20241209
  Receipt Date: 20241209
  Transmission Date: 20250115
  Serious: Yes (Hospitalization, Other)
  Sender: BAUSCH AND LOMB
  Company Number: CA-BAUSCH-BL-2024-017704

PATIENT
  Age: 59 Year
  Sex: Female

DRUGS (80)
  1. METFORMIN [Suspect]
     Active Substance: METFORMIN HYDROCHLORIDE
     Indication: Tachycardia
     Route: 065
  2. METFORMIN [Suspect]
     Active Substance: METFORMIN HYDROCHLORIDE
     Indication: Rheumatoid arthritis
  3. METFORMIN [Suspect]
     Active Substance: METFORMIN HYDROCHLORIDE
     Indication: Blood uric acid increased
  4. BISOPROLOL [Suspect]
     Active Substance: BISOPROLOL
     Indication: Tachycardia
     Route: 065
  5. BISOPROLOL [Suspect]
     Active Substance: BISOPROLOL
     Indication: Rheumatoid arthritis
  6. BISOPROLOL [Suspect]
     Active Substance: BISOPROLOL
     Indication: Blood uric acid increased
  7. DULOXETINE HYDROCHLORIDE [Suspect]
     Active Substance: DULOXETINE HYDROCHLORIDE
     Indication: Product used for unknown indication
     Dosage: CAPSULE, DELAYED RELEASE
     Route: 048
  8. ERELZI [Suspect]
     Active Substance: ETANERCEPT-SZZS
     Indication: Tachycardia
     Route: 058
  9. ERELZI [Suspect]
     Active Substance: ETANERCEPT-SZZS
     Indication: Rheumatoid arthritis
     Route: 058
  10. ERELZI [Suspect]
     Active Substance: ETANERCEPT-SZZS
     Indication: Blood uric acid increased
     Route: 058
  11. ERELZI [Suspect]
     Active Substance: ETANERCEPT-SZZS
     Route: 058
  12. FOLIC ACID [Suspect]
     Active Substance: FOLIC ACID
     Indication: Tachycardia
     Dosage: NOT SPECIFIED
     Route: 065
  13. FOLIC ACID [Suspect]
     Active Substance: FOLIC ACID
     Indication: Rheumatoid arthritis
  14. FOLIC ACID [Suspect]
     Active Substance: FOLIC ACID
     Indication: Blood uric acid increased
  15. INDOMETHACIN [Suspect]
     Active Substance: INDOMETHACIN
     Indication: Tachycardia
     Route: 048
  16. INDOMETHACIN [Suspect]
     Active Substance: INDOMETHACIN
     Indication: Rheumatoid arthritis
     Route: 048
  17. INDOMETHACIN [Suspect]
     Active Substance: INDOMETHACIN
     Indication: Blood uric acid increased
     Route: 065
  18. JARDIANCE [Suspect]
     Active Substance: EMPAGLIFLOZIN
     Indication: Tachycardia
     Route: 065
  19. JARDIANCE [Suspect]
     Active Substance: EMPAGLIFLOZIN
     Indication: Rheumatoid arthritis
  20. JARDIANCE [Suspect]
     Active Substance: EMPAGLIFLOZIN
     Indication: Blood uric acid increased
  21. LEFLUNOMIDE [Suspect]
     Active Substance: LEFLUNOMIDE
     Indication: Tachycardia
     Route: 048
  22. LEFLUNOMIDE [Suspect]
     Active Substance: LEFLUNOMIDE
     Indication: Rheumatoid arthritis
     Dosage: NOT SPECIFIED
     Route: 065
  23. LEFLUNOMIDE [Suspect]
     Active Substance: LEFLUNOMIDE
     Indication: Blood uric acid increased
  24. DULOXETINE [Suspect]
     Active Substance: DULOXETINE
     Indication: Tachycardia
     Dosage: CAPSULE, DELAYED RELEASE
     Route: 065
  25. DULOXETINE [Suspect]
     Active Substance: DULOXETINE
     Indication: Rheumatoid arthritis
  26. DULOXETINE [Suspect]
     Active Substance: DULOXETINE
     Indication: Blood uric acid increased
  27. ALLOPURINOL [Concomitant]
     Active Substance: ALLOPURINOL
     Indication: Tachycardia
  28. ALLOPURINOL [Concomitant]
     Active Substance: ALLOPURINOL
     Indication: Rheumatoid arthritis
  29. ALLOPURINOL [Concomitant]
     Active Substance: ALLOPURINOL
     Indication: Blood uric acid increased
  30. PERINDOPRIL ARGININE [Concomitant]
     Active Substance: PERINDOPRIL ARGININE
     Indication: Tachycardia
     Dosage: TABLET (ORALLY DISINTEGRATING)
     Route: 048
  31. PERINDOPRIL ARGININE [Concomitant]
     Active Substance: PERINDOPRIL ARGININE
     Indication: Rheumatoid arthritis
  32. PERINDOPRIL ARGININE [Concomitant]
     Active Substance: PERINDOPRIL ARGININE
     Indication: Blood uric acid increased
  33. CELEBREX [Concomitant]
     Active Substance: CELECOXIB
     Indication: Tachycardia
     Route: 048
  34. CELEBREX [Concomitant]
     Active Substance: CELECOXIB
     Indication: Rheumatoid arthritis
     Route: 048
  35. CELEBREX [Concomitant]
     Active Substance: CELECOXIB
     Indication: Blood uric acid increased
  36. CELEBREX [Concomitant]
     Active Substance: CELECOXIB
     Indication: Osteoarthritis
  37. PERINDOPRIL ERBUMINE [Concomitant]
     Active Substance: PERINDOPRIL ERBUMINE
     Indication: Product used for unknown indication
  38. PERINDOPRIL ERBUMINE [Concomitant]
     Active Substance: PERINDOPRIL ERBUMINE
  39. CYANOCOBALAMIN [Concomitant]
     Active Substance: CYANOCOBALAMIN
     Indication: Tachycardia
  40. CYANOCOBALAMIN [Concomitant]
     Active Substance: CYANOCOBALAMIN
     Indication: Rheumatoid arthritis
     Route: 065
  41. CYANOCOBALAMIN [Concomitant]
     Active Substance: CYANOCOBALAMIN
     Indication: Blood uric acid increased
  42. CYANOCOBALAMIN [Concomitant]
     Active Substance: CYANOCOBALAMIN
     Indication: Product used for unknown indication
  43. DICLOFENAC [Concomitant]
     Active Substance: DICLOFENAC
     Indication: Tachycardia
     Dosage: NOT SPECIFIED
     Route: 048
  44. DICLOFENAC [Concomitant]
     Active Substance: DICLOFENAC
     Indication: Rheumatoid arthritis
     Route: 061
  45. DICLOFENAC [Concomitant]
     Active Substance: DICLOFENAC
     Indication: Blood uric acid increased
  46. FERROUS GLUCONATE [Concomitant]
     Active Substance: FERROUS GLUCONATE
     Indication: Tachycardia
  47. FERROUS GLUCONATE [Concomitant]
     Active Substance: FERROUS GLUCONATE
     Indication: Rheumatoid arthritis
  48. FERROUS GLUCONATE [Concomitant]
     Active Substance: FERROUS GLUCONATE
     Indication: Blood uric acid increased
  49. IBUPROFEN [Concomitant]
     Active Substance: IBUPROFEN
     Indication: Tachycardia
     Route: 048
  50. IBUPROFEN [Concomitant]
     Active Substance: IBUPROFEN
     Indication: Rheumatoid arthritis
     Dosage: NOT SPECIFIED
  51. IBUPROFEN [Concomitant]
     Active Substance: IBUPROFEN
     Indication: Blood uric acid increased
  52. IBUPROFEN [Concomitant]
     Active Substance: IBUPROFEN
     Indication: Product used for unknown indication
  53. LYRICA [Concomitant]
     Active Substance: PREGABALIN
     Indication: Tachycardia
  54. LYRICA [Concomitant]
     Active Substance: PREGABALIN
     Indication: Rheumatoid arthritis
  55. LYRICA [Concomitant]
     Active Substance: PREGABALIN
     Indication: Blood uric acid increased
  56. METHOTREXATE [Concomitant]
     Active Substance: METHOTREXATE
     Indication: Tachycardia
     Route: 058
  57. METHOTREXATE [Concomitant]
     Active Substance: METHOTREXATE
     Indication: Rheumatoid arthritis
     Route: 048
  58. METHOTREXATE [Concomitant]
     Active Substance: METHOTREXATE
     Indication: Blood uric acid increased
     Dosage: NOT SPECIFIED
     Route: 058
  59. METHOTREXATE [Concomitant]
     Active Substance: METHOTREXATE
     Route: 048
  60. NAPROXEN [Concomitant]
     Active Substance: NAPROXEN
     Indication: Tachycardia
     Dosage: NOT SPECIFIED
     Route: 048
  61. NAPROXEN [Concomitant]
     Active Substance: NAPROXEN
     Indication: Rheumatoid arthritis
  62. NAPROXEN [Concomitant]
     Active Substance: NAPROXEN
     Indication: Blood uric acid increased
  63. PANTOPRAZOLE SODIUM [Concomitant]
     Active Substance: PANTOPRAZOLE SODIUM
     Indication: Tachycardia
  64. PANTOPRAZOLE SODIUM [Concomitant]
     Active Substance: PANTOPRAZOLE SODIUM
     Indication: Rheumatoid arthritis
  65. PANTOPRAZOLE SODIUM [Concomitant]
     Active Substance: PANTOPRAZOLE SODIUM
     Indication: Blood uric acid increased
  66. PANTOPRAZOLE SODIUM [Concomitant]
     Active Substance: PANTOPRAZOLE SODIUM
     Indication: Product used for unknown indication
  67. PANTOPRAZOLE SODIUM [Concomitant]
     Active Substance: PANTOPRAZOLE SODIUM
     Route: 061
  68. PRAVACHOL [Concomitant]
     Active Substance: PRAVASTATIN SODIUM
     Indication: Tachycardia
  69. PRAVACHOL [Concomitant]
     Active Substance: PRAVASTATIN SODIUM
     Indication: Rheumatoid arthritis
  70. PRAVACHOL [Concomitant]
     Active Substance: PRAVASTATIN SODIUM
     Indication: Blood uric acid increased
  71. SULFASALAZINE [Concomitant]
     Active Substance: SULFASALAZINE
     Indication: Tachycardia
     Dosage: NOT SPECIFIED
  72. SULFASALAZINE [Concomitant]
     Active Substance: SULFASALAZINE
     Indication: Rheumatoid arthritis
  73. SULFASALAZINE [Concomitant]
     Active Substance: SULFASALAZINE
     Indication: Blood uric acid increased
  74. SYNJARDY [Concomitant]
     Active Substance: EMPAGLIFLOZIN\METFORMIN HYDROCHLORIDE
     Indication: Tachycardia
  75. SYNJARDY [Concomitant]
     Active Substance: EMPAGLIFLOZIN\METFORMIN HYDROCHLORIDE
     Indication: Rheumatoid arthritis
  76. SYNJARDY [Concomitant]
     Active Substance: EMPAGLIFLOZIN\METFORMIN HYDROCHLORIDE
     Indication: Blood uric acid increased
  77. TYLENOL 8 HR ARTHRITIS PAIN [Concomitant]
     Active Substance: ACETAMINOPHEN
     Indication: Tachycardia
     Dosage: 3 ADMINISTRATIONS
     Route: 065
  78. TYLENOL 8 HR ARTHRITIS PAIN [Concomitant]
     Active Substance: ACETAMINOPHEN
     Indication: Rheumatoid arthritis
  79. TYLENOL 8 HR ARTHRITIS PAIN [Concomitant]
     Active Substance: ACETAMINOPHEN
     Indication: Blood uric acid increased
  80. TYLENOL 8 HR ARTHRITIS PAIN [Concomitant]
     Active Substance: ACETAMINOPHEN
     Dosage: TABLET (EXTENDED-RELEASE)

REACTIONS (35)
  - Alanine aminotransferase increased [Unknown]
  - Allergic sinusitis [Unknown]
  - Antinuclear antibody positive [Unknown]
  - Arthralgia [Unknown]
  - Arthritis [Unknown]
  - Arthropathy [Unknown]
  - Blood iron decreased [Unknown]
  - Blood uric acid increased [Unknown]
  - C-reactive protein increased [Unknown]
  - Condition aggravated [Unknown]
  - Cyst [Unknown]
  - Hepatic enzyme increased [Unknown]
  - Injection site pain [Unknown]
  - Injection site warmth [Unknown]
  - Joint effusion [Unknown]
  - Joint swelling [Unknown]
  - Nephrolithiasis [Unknown]
  - Oedema [Unknown]
  - Osteoarthritis [Unknown]
  - Pain [Unknown]
  - Psoriasis [Unknown]
  - Pyrexia [Unknown]
  - Renal disorder [Unknown]
  - Sepsis [Unknown]
  - Synovial disorder [Unknown]
  - Synovitis [Unknown]
  - Tendonitis [Unknown]
  - Urinary tract infection [Unknown]
  - Rash [Unknown]
  - Pain in extremity [Unknown]
  - Vitamin B12 decreased [Unknown]
  - Drug ineffective [Unknown]
  - Incorrect dose administered [Unknown]
  - Device issue [Unknown]
  - Wrong technique in device usage process [Unknown]
